FAERS Safety Report 8863329 (Version 3)
Quarter: 2012Q4

REPORT INFORMATION
  Report Type: Report from Study
  Country: CO (occurrence: CO)
  Receive Date: 20121025
  Receipt Date: 20121217
  Transmission Date: 20130627
  Serious: Yes (Other)
  Sender: FDA-Public Use
  Company Number: CO-ROCHE-1148856

PATIENT
  Age: 6 Year
  Sex: Male

DRUGS (1)
  1. MYCOPHENOLATE MOFETIL [Suspect]
     Indication: RENAL TRANSPLANT
     Route: 048
     Dates: start: 20100315

REACTIONS (3)
  - Kidney transplant rejection [Recovering/Resolving]
  - Hypertension [Recovering/Resolving]
  - Hypothyroidism [Not Recovered/Not Resolved]
